FAERS Safety Report 18404255 (Version 1)
Quarter: 2020Q4

REPORT INFORMATION
  Report Type: Other
  Country: US (occurrence: US)
  Receive Date: 20201020
  Receipt Date: 20201020
  Transmission Date: 20210114
  Serious: Yes (Hospitalization, Other)
  Sender: FDA-Public Use
  Company Number: US-NUVO PHARMACEUTICALS INC-2092939

PATIENT
  Age: 49 Year
  Sex: Male

DRUGS (3)
  1. FUROSEMIDE. [Suspect]
     Active Substance: FUROSEMIDE
     Route: 065
  2. SODIUM POLYSTYRENE SULFONATE. [Suspect]
     Active Substance: SODIUM POLYSTYRENE SULFONATE
     Indication: PRODUCT USED FOR UNKNOWN INDICATION
     Route: 065
  3. MIDODRINE HYDROCHLORIDE. [Suspect]
     Active Substance: MIDODRINE HYDROCHLORIDE
     Route: 065

REACTIONS (4)
  - Generalised oedema [Unknown]
  - Acidosis [Unknown]
  - Hypoxia [Unknown]
  - Oliguria [Unknown]
